FAERS Safety Report 13059315 (Version 6)
Quarter: 2017Q4

REPORT INFORMATION
  Report Type: Spontaneous
  Country: US (occurrence: US)
  Receive Date: 20161223
  Receipt Date: 20171227
  Transmission Date: 20180320
  Serious: Yes (Hospitalization, Other)
  Sender: FDA-Public Use
  Company Number: US-BAUSCH-BL-2016-017670

PATIENT
  Age: 8 Year
  Sex: Male
  Weight: 42.68 kg

DRUGS (10)
  1. GABAPENTIN. [Concomitant]
     Active Substance: GABAPENTIN
     Indication: PRODUCT USED FOR UNKNOWN INDICATION
     Dosage: BED TIME
  2. MELATONIN [Concomitant]
     Active Substance: MELATONIN
     Indication: PRODUCT USED FOR UNKNOWN INDICATION
     Dosage: AT BEDTIME AS NEEDED
  3. TETRABENAZINE. [Suspect]
     Active Substance: TETRABENAZINE
     Indication: NEURODEGENERATIVE DISORDER
     Route: 048
     Dates: start: 201607
  4. VALIUM [Concomitant]
     Active Substance: DIAZEPAM
     Indication: DYSTONIA
     Dosage: 10 TO 20MG
     Route: 054
  5. CLONAZEPAM. [Concomitant]
     Active Substance: CLONAZEPAM
     Indication: PRODUCT USED FOR UNKNOWN INDICATION
     Dosage: TWO PILLS IN THE MORNING AND ONE AT BEDTIME
  6. MIDAZOLAM [Concomitant]
     Active Substance: MIDAZOLAM HYDROCHLORIDE
     Indication: DYSTONIA
     Dosage: ONE SPRAY INTO EACH NOSTRIL AFTER EVERY 2-3 MINUTES OF DYSTONIA
  7. XENAZINE [Suspect]
     Active Substance: TETRABENAZINE
     Indication: NEURODEGENERATIVE DISORDER
     Route: 048
     Dates: start: 20091115
  8. XENAZINE [Suspect]
     Active Substance: TETRABENAZINE
     Dosage: 25 MG IN AM AND 12.5 MG  AT BED TIME.
     Route: 048
     Dates: start: 20160714
  9. XENAZINE [Suspect]
     Active Substance: TETRABENAZINE
     Indication: DYSTONIA
     Route: 048
     Dates: start: 201201
  10. VITAMIN D3 [Concomitant]
     Active Substance: CHOLECALCIFEROL
     Indication: PRODUCT USED FOR UNKNOWN INDICATION

REACTIONS (8)
  - Dystonia [Unknown]
  - Neurodegenerative disorder [Unknown]
  - Tremor [Unknown]
  - Off label use [Unknown]
  - Condition aggravated [Unknown]
  - Leukoencephalopathy [Unknown]
  - Staphylococcal infection [Unknown]
  - Drug ineffective for unapproved indication [Unknown]

NARRATIVE: CASE EVENT DATE: 201201
